FAERS Safety Report 8896429 (Version 1)
Quarter: 2012Q4

REPORT INFORMATION
  Report Type: Spontaneous
  Country: GB (occurrence: None)
  Receive Date: 20121102
  Receipt Date: 20121102
  Transmission Date: 20130627
  Serious: Yes (Life-Threatening, Hospitalization, Other)
  Sender: FDA-Public Use
  Company Number: GER/UKI/12/0026332

PATIENT
  Age: 47 Year
  Sex: Male
  Weight: 80 kg

DRUGS (3)
  1. QUETIAPINE [Suspect]
     Route: 048
     Dates: start: 20111220, end: 20120110
  2. RAMIPRIL (RAMIPRIL) [Concomitant]
  3. VENLAFAXINE [Concomitant]

REACTIONS (3)
  - Cardiac arrest [None]
  - Pulmonary embolism [None]
  - Embolism venous [None]
